FAERS Safety Report 8126605 (Version 3)
Quarter: 2013Q1

REPORT INFORMATION
  Report Type: Spontaneous
  Country: US (occurrence: US)
  Receive Date: 20110908
  Receipt Date: 20130201
  Transmission Date: 20140127
  Serious: Yes (Other)
  Sender: FDA-Public Use
  Company Number: US-GLAXOSMITHKLINE-A0896869A

PATIENT
  Age: 66 Year
  Sex: Female
  Weight: 84.1 kg

DRUGS (2)
  1. AVANDIA [Suspect]
     Indication: DIABETES MELLITUS
     Route: 048
  2. AVANDAMET [Suspect]
     Indication: DIABETES MELLITUS
     Route: 048
     Dates: start: 20040511, end: 200602

REACTIONS (3)
  - Atrioventricular block complete [Not Recovered/Not Resolved]
  - Dyspnoea [Unknown]
  - Cardiac flutter [Unknown]
